FAERS Safety Report 24453604 (Version 2)
Quarter: 2024Q4

REPORT INFORMATION
  Report Type: Report from Study
  Country: US (occurrence: US)
  Receive Date: 20241017
  Receipt Date: 20241018
  Transmission Date: 20250114
  Serious: No
  Sender: ROCHE
  Company Number: US-ROCHE-3352483

PATIENT
  Age: 53 Year
  Sex: Female

DRUGS (4)
  1. RITUXAN [Suspect]
     Active Substance: RITUXIMAB
     Indication: Rheumatoid arthritis
     Dosage: INFUSE 1000MG INTRAVENOUSLY EVERY 6 MONTH(S)
     Route: 041
     Dates: start: 20230419
  2. RITUXAN [Suspect]
     Active Substance: RITUXIMAB
     Indication: Scleritis
  3. RITUXAN [Suspect]
     Active Substance: RITUXIMAB
     Indication: Keratitis
  4. RITUXAN [Suspect]
     Active Substance: RITUXIMAB
     Indication: Ulcerative keratitis

REACTIONS (2)
  - Product prescribing error [Unknown]
  - No adverse event [Unknown]
